FAERS Safety Report 5823047-7 (Version None)
Quarter: 2008Q3

REPORT INFORMATION
  Report Type: 
  Country: None (occurrence: None)
  Receive Date: 20080725
  Receipt Date: 20070823
  Transmission Date: 20090109
  Serious: No
  Sender: FDA-Public Use
  Company Number: US-AMGEN-KDL238866

PATIENT
  Sex: Female
  Weight: 64.5 kg

DRUGS (10)
  1. PROCRIT [Suspect]
     Indication: PRE-EXISTING DISEASE
     Route: 058
     Dates: start: 20060101
  2. PREVACID [Concomitant]
  3. AZULFIDINE EN-TABS [Concomitant]
  4. PEPCID [Concomitant]
  5. POTASSIUM CHLORIDE [Concomitant]
  6. AVANDIA [Concomitant]
  7. SPIRONOLACTONE [Concomitant]
  8. QUESTRAN [Concomitant]
  9. METHOTREXATE [Concomitant]
  10. BLOOD CELLS, PACKED HUMAN [Concomitant]

REACTIONS (2)
  - PLATELET COUNT DECREASED [None]
  - WHITE BLOOD CELL COUNT DECREASED [None]
